FAERS Safety Report 8541570-1 (Version None)
Quarter: 2012Q3

REPORT INFORMATION
  Report Type: 
  Country: None (occurrence: None)
  Receive Date: 20120726
  Receipt Date: 20120521
  Transmission Date: 20120928
  Serious: No
  Sender: FDA-Public Use
  Company Number: US-MUTUAL PHARMACEUTICAL COMPANY, INC.-CLHC20120034

PATIENT
  Sex: 0

DRUGS (3)
  1. COLCHICINE [Suspect]
     Indication: GOUTY ARTHRITIS
     Route: 048
  2. ULORIC [Suspect]
     Indication: GOUT
  3. ULORIC [Suspect]
     Indication: HYPERURICAEMIA
     Route: 048
     Dates: end: 20120101

REACTIONS (1)
  - DIARRHOEA [None]
